FAERS Safety Report 24136608 (Version 1)
Quarter: 2024Q3

REPORT INFORMATION
  Report Type: Spontaneous
  Country: US (occurrence: None)
  Receive Date: 20240724
  Receipt Date: 20240724
  Transmission Date: 20241016
  Serious: Yes (Other)
  Sender: Public
  Company Number: None

PATIENT
  Age: 56 Year
  Sex: Female

DRUGS (1)
  1. RINVOQ [Suspect]
     Active Substance: UPADACITINIB
     Indication: Colitis ulcerative
     Dosage: OTHER FREQUENCY : QD FOR 8 WEEKS;?
     Route: 048

REACTIONS (3)
  - Sunburn [None]
  - Rash [None]
  - Rash erythematous [None]
